FAERS Safety Report 8788711 (Version 2)
Quarter: 2012Q4

REPORT INFORMATION
  Report Type: 
  Country: US (occurrence: US)
  Receive Date: 20120915
  Receipt Date: 20120917
  Transmission Date: 20130627
  Serious: Yes (Other)
  Sender: FDA-Public Use
  Company Number: US-ABBOTT-12P-163-0979646-00

PATIENT
  Age: 56 None
  Sex: Female
  Weight: 148 kg

DRUGS (2)
  1. TARKA [Suspect]
     Indication: HYPERTENSION
     Route: 048
  2. REMICADE [Suspect]
     Indication: PSORIATIC ARTHROPATHY
     Route: 042
     Dates: start: 2000

REACTIONS (7)
  - Seroma [Recovering/Resolving]
  - Benign breast neoplasm [Recovered/Resolved]
  - Wound infection staphylococcal [Not Recovered/Not Resolved]
  - Blood pressure fluctuation [Not Recovered/Not Resolved]
  - Breast discharge [Not Recovered/Not Resolved]
  - Burning sensation [Recovering/Resolving]
  - Breast swelling [Recovering/Resolving]
